FAERS Safety Report 14950372 (Version 3)
Quarter: 2018Q2

REPORT INFORMATION
  Report Type: Spontaneous
  Country: CZ (occurrence: CZ)
  Receive Date: 20180530
  Receipt Date: 20180620
  Transmission Date: 20180711
  Serious: Yes (Other)
  Sender: FDA-Public Use
  Company Number: CZ-TEVA-2018-CZ-898507

PATIENT
  Sex: Male

DRUGS (9)
  1. BEVACIZUMAB. [Concomitant]
     Active Substance: BEVACIZUMAB
     Indication: COLORECTAL CANCER
     Dates: start: 201504
  2. FLUOROURACIL. [Concomitant]
     Active Substance: FLUOROURACIL
     Indication: COLORECTAL CANCER
     Dates: start: 201504
  3. CAPECITABINE. [Concomitant]
     Active Substance: CAPECITABINE
     Indication: COLORECTAL CANCER
     Route: 048
     Dates: start: 20151104
  4. DEXAMETHASONE. [Concomitant]
     Active Substance: DEXAMETHASONE
     Dosage: PRE-MEDICATION
  5. IRINOTECAN [Suspect]
     Active Substance: IRINOTECAN
     Indication: COLORECTAL CANCER
     Dosage: PART OF FOLFIRI  REGIMEN
     Route: 042
     Dates: start: 201504, end: 201507
  6. TRIFLURIDIN/TIPIRACIL [Concomitant]
     Indication: COLORECTAL CANCER
     Dosage: 35 MG/M2 TWICE DAILY FROM 1ST TILL 5TH DAY AND THEN FROM 8TH TO 12TH DAY EVERY 28 DAYS
     Dates: start: 20160209, end: 201712
  7. PALONOSETRON. [Concomitant]
     Active Substance: PALONOSETRON HYDROCHLORIDE
     Dosage: PRE-MEDICATION
  8. CALCIUM GLUCONICUM [Concomitant]
     Dosage: PRE-MEDICATION
  9. FOLINIC ACID [Suspect]
     Active Substance: LEUCOVORIN
     Indication: COLORECTAL CANCER
     Dosage: PART OF FOLFIRI  REGIMEN
     Route: 042
     Dates: start: 201504, end: 201507

REACTIONS (9)
  - Neutropenia [Unknown]
  - Loss of consciousness [Recovered/Resolved]
  - Circulatory collapse [Recovered/Resolved]
  - Syncope [Recovered/Resolved]
  - Nausea [Unknown]
  - Decreased appetite [Unknown]
  - Anaemia [Unknown]
  - Facial bones fracture [Recovered/Resolved]
  - Respiratory arrest [Recovered/Resolved]

NARRATIVE: CASE EVENT DATE: 2015
